FAERS Safety Report 10029703 (Version 1)
Quarter: 2014Q1

REPORT INFORMATION
  Report Type: Spontaneous
  Country: US (occurrence: None)
  Receive Date: 20140321
  Receipt Date: 20140321
  Transmission Date: 20141002
  Serious: Yes (Other)
  Sender: FDA-Public Use
  Company Number: None

PATIENT
  Age: 60 Year
  Sex: Female
  Weight: 90.72 kg

DRUGS (1)
  1. AMITRIPTYLINE [Suspect]
     Indication: NEUROPATHY PERIPHERAL
     Route: 048
     Dates: start: 20131028, end: 20131103

REACTIONS (4)
  - Depression [None]
  - Activities of daily living impaired [None]
  - Suicidal ideation [None]
  - Drug ineffective [None]
